FAERS Safety Report 7443290-3 (Version None)
Quarter: 2011Q2

REPORT INFORMATION
  Report Type: 
  Country: None (occurrence: None)
  Receive Date: 20110428
  Receipt Date: 20110425
  Transmission Date: 20111010
  Serious: Yes (Death)
  Sender: FDA-Public Use
  Company Number: US-ACTELION-A-US2011-45817

PATIENT

DRUGS (3)
  1. TRACLEER [Suspect]
     Indication: PULMONARY ARTERIAL HYPERTENSION
     Dosage: UNK
     Route: 048
     Dates: start: 20080910, end: 20110301
  2. COUMADIN [Concomitant]
  3. REVATIO [Concomitant]

REACTIONS (5)
  - RESPIRATORY FAILURE [None]
  - SARCOIDOSIS [None]
  - FLUID OVERLOAD [None]
  - PULMONARY HYPERTENSION [None]
  - CARDIAC FAILURE [None]
